FAERS Safety Report 19454920 (Version 1)
Quarter: 2021Q2

REPORT INFORMATION
  Report Type: Spontaneous
  Country: JP (occurrence: JP)
  Receive Date: 20210623
  Receipt Date: 20210623
  Transmission Date: 20210717
  Serious: Yes (Other)
  Sender: FDA-Public Use
  Company Number: JP-PFIZER INC-2021687454

PATIENT
  Age: 7 Decade
  Sex: Female

DRUGS (3)
  1. SOLU?CORTEF [Suspect]
     Active Substance: HYDROCORTISONE SODIUM SUCCINATE
     Dosage: 200 MG, SINGLE
  2. DEXART [Suspect]
     Active Substance: DEXAMETHASONE SODIUM PHOSPHATE
  3. ALKERAN [Suspect]
     Active Substance: MELPHALAN

REACTIONS (1)
  - Hallucination, auditory [Not Recovered/Not Resolved]
